FAERS Safety Report 9790545 (Version 2)
Quarter: 2014Q1

REPORT INFORMATION
  Report Type: Spontaneous
  Country: IT (occurrence: IT)
  Receive Date: 20131231
  Receipt Date: 20140227
  Transmission Date: 20141002
  Serious: Yes (Hospitalization)
  Sender: FDA-Public Use
  Company Number: IT-PFIZER INC-2013371320

PATIENT
  Age: 68 Year
  Sex: Male
  Weight: 81 kg

DRUGS (2)
  1. ATORVASTATIN CALCIUM [Suspect]
     Indication: HYPERCHOLESTEROLAEMIA
     Dosage: 40 MG, DAILY
     Route: 048
     Dates: start: 20130101, end: 20131114
  2. COLCHICINA ^LIRCA^ [Interacting]
     Indication: GOITRE
     Dosage: 2 MG, DAILY
     Route: 048
     Dates: start: 20131101, end: 20131114

REACTIONS (4)
  - Polymyositis [Recovering/Resolving]
  - Asthenia [Recovering/Resolving]
  - Rhabdomyolysis [Recovering/Resolving]
  - Drug interaction [Recovering/Resolving]
